FAERS Safety Report 11702980 (Version 1)
Quarter: 2015Q4

REPORT INFORMATION
  Report Type: Spontaneous
  Country: AU (occurrence: AU)
  Receive Date: 20151105
  Receipt Date: 20151105
  Transmission Date: 20160304
  Serious: Yes (Other)
  Sender: FDA-Public Use
  Company Number: AU-SA-2015SA169537

PATIENT
  Age: 83 Year
  Sex: Female

DRUGS (1)
  1. CLEXANE [Suspect]
     Active Substance: ENOXAPARIN SODIUM
     Indication: PULMONARY EMBOLISM
     Route: 065

REACTIONS (3)
  - Pulmonary embolism [Unknown]
  - Knee arthroplasty [Unknown]
  - Drug dose omission [Unknown]
